FAERS Safety Report 10071678 (Version 2)
Quarter: 2014Q2

REPORT INFORMATION
  Report Type: Spontaneous
  Country: AU (occurrence: AU)
  Receive Date: 20140411
  Receipt Date: 20140428
  Transmission Date: 20141212
  Serious: Yes (Other)
  Sender: FDA-Public Use
  Company Number: AU-ROCHE-1379021

PATIENT
  Sex: Female

DRUGS (3)
  1. XELODA [Suspect]
     Indication: GASTRIC CANCER
     Route: 065
  2. HERCEPTIN [Suspect]
     Indication: DISEASE PROGRESSION
     Route: 065
     Dates: start: 20140403
  3. HERCEPTIN [Suspect]
     Indication: JAUNDICE

REACTIONS (3)
  - Disease progression [Unknown]
  - Jaundice [Unknown]
  - Off label use [Unknown]
